FAERS Safety Report 5392249-9 (Version None)
Quarter: 2007Q3

REPORT INFORMATION
  Report Type: 
  Country: None (occurrence: None)
  Receive Date: 20070720
  Receipt Date: 20070716
  Transmission Date: 20080115
  Serious: Yes (Hospitalization)
  Sender: FDA-Public Use
  Company Number: FR-ASTRAZENECA-2007CG01070

PATIENT
  Age: 41 Year
  Sex: Male

DRUGS (6)
  1. NEXIUM [Suspect]
     Route: 048
     Dates: end: 20070430
  2. ACOMPLIA [Suspect]
     Route: 048
     Dates: start: 20070409, end: 20070430
  3. VALSARTAN AND HYDROCHLOROTHIAZIDE [Suspect]
     Indication: HYPERTENSION
     Route: 048
     Dates: start: 20070301, end: 20070430
  4. AVANDAMET [Concomitant]
     Indication: TYPE 2 DIABETES MELLITUS
  5. DIAMICRON [Concomitant]
     Indication: TYPE 2 DIABETES MELLITUS
  6. LIPANTHYL [Concomitant]
     Indication: DYSLIPIDAEMIA
     Dates: start: 20060901

REACTIONS (1)
  - RENAL FAILURE ACUTE [None]
